FAERS Safety Report 5327713-1 (Version None)
Quarter: 2007Q2

REPORT INFORMATION
  Report Type: 
  Country: None (occurrence: None)
  Receive Date: 20070514
  Receipt Date: 20070426
  Transmission Date: 20071010
  Serious: Yes (Congenital Anomaly, Other)
  Sender: FDA-Public Use
  Company Number: 2007US001007

PATIENT
  Age: 1 Day
  Sex: 0

DRUGS (5)
  1. PROGRAF [Suspect]
     Indication: DRUG EXPOSURE DURING PREGNANCY
  2. MYCOPHENOLATE MOFETIL [Suspect]
     Indication: DRUG EXPOSURE DURING PREGNANCY
     Dosage: SEE IMAGE
  3. PREDNISONE TAB [Suspect]
     Indication: DRUG EXPOSURE DURING PREGNANCY
  4. IRON (IRON) [Concomitant]
  5. PRENATAL VITAMINS (ASCORBICA CID, TOCOPHEROL, NICOTINIC ACID, MINERALS [Concomitant]

REACTIONS (5)
  - CONGENITAL HAND MALFORMATION [None]
  - CONGENITAL NAIL DISORDER [None]
  - DRUG EXPOSURE DURING PREGNANCY [None]
  - FINGER DEFORMITY [None]
  - PREMATURE BABY [None]
